FAERS Safety Report 9431842 (Version 1)
Quarter: 2013Q3

REPORT INFORMATION
  Report Type: Spontaneous
  Country: JP (occurrence: JP)
  Receive Date: 20130731
  Receipt Date: 20130731
  Transmission Date: 20140515
  Serious: Yes (Hospitalization)
  Sender: FDA-Public Use
  Company Number: PHHY2013JP080514

PATIENT
  Sex: Female

DRUGS (2)
  1. DIOVAN [Suspect]
     Dosage: UNK UKN, UNK
     Route: 048
  2. NIVADIL [Concomitant]
     Dosage: UNK UKN, UNK
     Route: 048

REACTIONS (2)
  - Uterine cancer [Unknown]
  - Blood pressure increased [Recovering/Resolving]
